FAERS Safety Report 24648367 (Version 1)
Quarter: 2024Q4

REPORT INFORMATION
  Report Type: Spontaneous
  Country: CZ (occurrence: CZ)
  Receive Date: 20241121
  Receipt Date: 20241121
  Transmission Date: 20250114
  Serious: Yes (Life-Threatening, Hospitalization, Other)
  Sender: MERCK
  Company Number: None

PATIENT
  Age: 49 Year
  Sex: Female
  Weight: 98 kg

DRUGS (2)
  1. KEYTRUDA [Suspect]
     Active Substance: PEMBROLIZUMAB
     Indication: Breast cancer
     Dosage: PEMBROLIZUMAB FLAT DOSE 200 MG EVERY 21 DAYS, GIVEN A TOTAL OF 8 CYCLES (SIMULTANEOUSLY ADMINISTERED
     Dates: start: 20240412, end: 20241004
  2. PACLITAXEL [Concomitant]
     Active Substance: PACLITAXEL
     Indication: Breast cancer
     Dosage: DOSE OF 160 MG EVERY 7 DAYS (CEILING DOSE PER BSA2M2; ADMINISTRATION CONTINUES; 26 CYCLES ADMINISTER
     Dates: start: 20240412

REACTIONS (6)
  - Psychomotor skills impaired [Unknown]
  - Hypophysitis [Recovering/Resolving]
  - Secondary adrenocortical insufficiency [Recovering/Resolving]
  - Hypotension [Recovering/Resolving]
  - Tachycardia [Recovering/Resolving]
  - Myalgia [Recovering/Resolving]

NARRATIVE: CASE EVENT DATE: 20241018
